FAERS Safety Report 15311841 (Version 1)
Quarter: 2018Q3

REPORT INFORMATION
  Report Type: Spontaneous
  Country: DE (occurrence: DE)
  Receive Date: 20180823
  Receipt Date: 20180823
  Transmission Date: 20181010
  Serious: Yes (Hospitalization, Other)
  Sender: FDA-Public Use
  Company Number: DE-PFIZER INC-2018333200

PATIENT
  Age: 55 Year
  Sex: Female
  Weight: 56 kg

DRUGS (10)
  1. JURNISTA [Concomitant]
     Active Substance: HYDROMORPHONE HYDROCHLORIDE
     Dosage: 8 MG, 1X/DAY, LONG?TERM TREATMENT
     Dates: end: 20180522
  2. RAMIPRIL. [Concomitant]
     Active Substance: RAMIPRIL
     Dosage: 5 MG, 1X/DAY LONG?TERM TREATMENT
     Dates: end: 20180522
  3. GABAPENTIN. [Concomitant]
     Active Substance: GABAPENTIN
     Dosage: 200 MG, UNK LONG?TERM TREATMENT
     Dates: end: 20180522
  4. ZOLPIDEM [Concomitant]
     Active Substance: ZOLPIDEM\ZOLPIDEM TARTRATE
     Dosage: 10 MG, 1X/DAY, LONG?TERM TREATMENT
     Dates: end: 20180522
  5. PANTOPRAZOLE [Concomitant]
     Active Substance: PANTOPRAZOLE
     Dosage: 40 MG, 1X/DAY, LONG?TERM TREATMENT
     Dates: end: 20180522
  6. PALBOCICLIB [Suspect]
     Active Substance: PALBOCICLIB
     Indication: BREAST CANCER METASTATIC
     Dosage: 75 MG DAY 1?21, REPEAT ON DAY 29
     Route: 048
     Dates: start: 201711, end: 20180523
  7. FELODIPINE. [Concomitant]
     Active Substance: FELODIPINE
     Dosage: 5 MG, 1X/DAY LONG?TERM TREATMENT
     Dates: end: 20180522
  8. CALCICARE D3 [Concomitant]
     Dosage: 1 DF, 2X/DAY LONG?TERM TREATMENT
     Dates: end: 20180522
  9. FULVESTRANT. [Concomitant]
     Active Substance: FULVESTRANT
     Indication: BREAST CANCER METASTATIC
     Dosage: 2X250MG EVERY 4 WEEKS
     Route: 030
     Dates: start: 201711
  10. BISOPROLOL [Concomitant]
     Active Substance: BISOPROLOL
     Dosage: 5 MG, 1X/DAY, LONG?TERM TREATMENT
     Dates: end: 20180522

REACTIONS (8)
  - Cerebral ischaemia [Unknown]
  - Pneumonia [Not Recovered/Not Resolved]
  - Enterococcal infection [Not Recovered/Not Resolved]
  - Escherichia sepsis [Not Recovered/Not Resolved]
  - Tonsillitis [Not Recovered/Not Resolved]
  - Pleural effusion [Unknown]
  - Disease recurrence [Unknown]
  - Urinary tract infection [Not Recovered/Not Resolved]

NARRATIVE: CASE EVENT DATE: 20180223
